FAERS Safety Report 6386025-8 (Version None)
Quarter: 2009Q4

REPORT INFORMATION
  Report Type: 
  Country: None (occurrence: None)
  Receive Date: 20091002
  Receipt Date: 20081111
  Transmission Date: 20100525
  Serious: No
  Sender: FDA-Public Use
  Company Number: US-ASTRAZENECA-2008UW25356

PATIENT
  Sex: Female

DRUGS (2)
  1. ARIMIDEX [Suspect]
     Route: 048
     Dates: start: 20060101
  2. LASIX [Interacting]
     Route: 048
     Dates: start: 20080901

REACTIONS (3)
  - BLISTER [None]
  - DRUG INTERACTION [None]
  - PAIN [None]
